FAERS Safety Report 6531489-X (Version None)
Quarter: 2010Q1

REPORT INFORMATION
  Report Type: 
  Country: None (occurrence: None)
  Receive Date: 20100108
  Receipt Date: 20090205
  Transmission Date: 20100710
  Serious: No
  Sender: FDA-Public Use
  Company Number: US-BAYER-200910499BCC

PATIENT
  Age: 50 Year
  Sex: Female
  Weight: 91 kg

DRUGS (3)
  1. ALEVE (CAPLET) [Suspect]
     Indication: HEADACHE
     Dosage: AS USED: 220 MG  UNIT DOSE: 220 MG
  2. METFORMIN HCL [Concomitant]
  3. ATENOLOL [Concomitant]

REACTIONS (2)
  - ANAEMIA [None]
  - EPISTAXIS [None]
